FAERS Safety Report 26025454 (Version 2)
Quarter: 2025Q4

REPORT INFORMATION
  Report Type: Other
  Country: US (occurrence: None)
  Receive Date: 20251111
  Receipt Date: 20251229
  Transmission Date: 20260117
  Serious: Yes (Other)
  Sender: APOTEX
  Company Number: US-APOTEX-2025AP032414

PATIENT
  Sex: Female

DRUGS (1)
  1. LISDEXAMFETAMINE [Suspect]
     Active Substance: LISDEXAMFETAMINE
     Indication: Attention deficit hyperactivity disorder
     Dosage: UNK
     Route: 065

REACTIONS (9)
  - Intentional self-injury [Unknown]
  - Suicidal ideation [Unknown]
  - Condition aggravated [Unknown]
  - Feeling of despair [Unknown]
  - Crying [Unknown]
  - Impaired quality of life [Unknown]
  - Product substitution issue [Unknown]
  - Depression [Unknown]
  - Therapeutic response decreased [Unknown]
